FAERS Safety Report 21354746 (Version 1)
Quarter: 2022Q3

REPORT INFORMATION
  Report Type: Spontaneous
  Country: US (occurrence: None)
  Receive Date: 20220919
  Receipt Date: 20220919
  Transmission Date: 20221026
  Serious: Yes (Other)
  Sender: FDA-Public Use
  Company Number: None

PATIENT
  Age: 47 Year
  Sex: Male
  Weight: 117 kg

DRUGS (3)
  1. METHYLENE BLUE [Suspect]
     Active Substance: METHYLENE BLUE
     Indication: Nervous system disorder
     Dosage: FREQUENCY : DAILY;?
     Route: 048
     Dates: start: 20220823, end: 20220917
  2. OMEGA 3 [Concomitant]
     Active Substance: CAPSAICIN
  3. fish oils [Concomitant]

REACTIONS (2)
  - Headache [None]
  - Oropharyngeal pain [None]

NARRATIVE: CASE EVENT DATE: 20220901
